FAERS Safety Report 10217188 (Version 1)
Quarter: 2014Q2

REPORT INFORMATION
  Report Type: Spontaneous
  Country: DE (occurrence: DE)
  Receive Date: 20140604
  Receipt Date: 20140604
  Transmission Date: 20141212
  Serious: Yes (Life-Threatening, Other)
  Sender: FDA-Public Use
  Company Number: DE-ROXANE LABORATORIES, INC.-2014-RO-00844RO

PATIENT
  Age: 31 Year
  Sex: Male

DRUGS (1)
  1. METHADONE [Suspect]
     Indication: PRODUCT USED FOR UNKNOWN INDICATION
     Dosage: 10 ML
     Route: 058

REACTIONS (4)
  - Suicidal ideation [Unknown]
  - Acute hepatic failure [Unknown]
  - Renal failure acute [Unknown]
  - Erectile dysfunction [Not Recovered/Not Resolved]
